FAERS Safety Report 5870755-8 (Version None)
Quarter: 2008Q3

REPORT INFORMATION
  Report Type: 
  Country: None (occurrence: None)
  Receive Date: 20080902
  Receipt Date: 20080819
  Transmission Date: 20090109
  Serious: Yes (Other)
  Sender: FDA-Public Use
  Company Number: 2008BI021659

PATIENT
  Age: 52 Year
  Sex: Female

DRUGS (2)
  1. AVONEX [Suspect]
     Indication: MULTIPLE SCLEROSIS
     Dosage: 30 UG;QW;IM 30 UG;QW;IM
     Route: 030
     Dates: start: 20010720, end: 20080101
  2. AVONEX [Suspect]
     Indication: MULTIPLE SCLEROSIS
     Dosage: 30 UG;QW;IM 30 UG;QW;IM
     Route: 030
     Dates: start: 20080616

REACTIONS (5)
  - CHONDROPATHY [None]
  - DRUG INEFFECTIVE [None]
  - FATIGUE [None]
  - KNEE ARTHROPLASTY [None]
  - REFLEXES ABNORMAL [None]
